FAERS Safety Report 9917978 (Version 1)
Quarter: 2014Q1

REPORT INFORMATION
  Report Type: Report from Study
  Country: US (occurrence: US)
  Receive Date: 20140222
  Receipt Date: 20140222
  Transmission Date: 20141002
  Serious: Yes (Hospitalization, Other)
  Sender: FDA-Public Use
  Company Number: US-ROCHE-1348319

PATIENT
  Age: 59 Year
  Sex: Female

DRUGS (14)
  1. ACTEMRA [Suspect]
     Indication: RHEUMATOID ARTHRITIS
     Route: 042
     Dates: start: 201309
  2. ACTEMRA [Suspect]
     Route: 042
     Dates: start: 201312
  3. ACTEMRA [Suspect]
     Route: 065
     Dates: start: 20140112
  4. RITUXAN [Suspect]
     Indication: RHEUMATOID ARTHRITIS
     Dosage: STOPPED IN 2011 AFTER 2-3 MONTHS
     Route: 042
     Dates: start: 2011
  5. ZANAFLEX [Concomitant]
     Route: 065
  6. XANAX [Concomitant]
     Dosage: 1-2 TABS
     Route: 065
  7. LIPITOR [Concomitant]
     Route: 065
  8. LEVOTHYROXINE [Concomitant]
     Route: 065
  9. KEPPRA [Concomitant]
     Route: 065
  10. BYSTOLIC [Concomitant]
     Route: 065
  11. LASIX [Concomitant]
  12. CLONIDINE [Concomitant]
  13. LEXAPRO [Concomitant]
  14. MIRTAZAPINE [Concomitant]

REACTIONS (5)
  - Dehydration [Recovering/Resolving]
  - Renal failure [Recovering/Resolving]
  - Influenza [Not Recovered/Not Resolved]
  - Nervous system disorder [Not Recovered/Not Resolved]
  - Ocular hyperaemia [Unknown]
